FAERS Safety Report 7862205-7 (Version None)
Quarter: 2011Q4

REPORT INFORMATION
  Report Type: 
  Country: None (occurrence: None)
  Receive Date: 20111027
  Receipt Date: 20101105
  Transmission Date: 20120403
  Serious: No
  Sender: FDA-Public Use
  Company Number: US-AMGEN-KDL341914

PATIENT
  Age: 60 Year
  Sex: Female

DRUGS (2)
  1. ENBREL [Suspect]
     Indication: RHEUMATOID ARTHRITIS
     Dosage: 50 MG, QWK
     Route: 058
     Dates: start: 20060801
  2. ENBREL [Suspect]
     Dates: start: 20050415

REACTIONS (3)
  - VOCAL CORD POLYP [None]
  - INJECTION SITE HAEMATOMA [None]
  - PHARYNGITIS STREPTOCOCCAL [None]
